FAERS Safety Report 17632378 (Version 4)
Quarter: 2020Q3

REPORT INFORMATION
  Report Type: Spontaneous
  Country: CN (occurrence: CN)
  Receive Date: 20200406
  Receipt Date: 20200727
  Transmission Date: 20201105
  Serious: Yes (Death, Life-Threatening, Hospitalization)
  Sender: FDA-Public Use
  Company Number: CN-CELGENEUS-CHN-20200401018

PATIENT
  Age: 59 Year
  Sex: Female
  Weight: 64.5 kg

DRUGS (22)
  1. GALAKE [Concomitant]
     Active Substance: ACETAMINOPHEN\DIHYDROCODEINE BITARTRATE
     Indication: BACK PAIN
     Dosage: 2 TABLET
     Route: 048
     Dates: start: 20200222, end: 20200319
  2. METOPROLOL TARTRATE. [Concomitant]
     Active Substance: METOPROLOL TARTRATE
     Indication: HEART RATE DECREASED
     Dosage: 12.5 MILLIGRAM
     Route: 048
     Dates: start: 20200323, end: 20200327
  3. HYDROCHLOROTHIAZIDE. [Concomitant]
     Active Substance: HYDROCHLOROTHIAZIDE
     Indication: DIURETIC THERAPY
     Dosage: 50 MILLIGRAM
     Route: 048
     Dates: start: 20200326, end: 20200327
  4. RECOMBINANT HUMAN GRANULOCYTE COLONY?STIMULATING FACTOR [Concomitant]
     Active Substance: GRANULOCYTE COLONY-STIMULATING FACTOR NOS
     Indication: WHITE BLOOD CELL COUNT INCREASED
     Dosage: .1 MILLIGRAM
     Route: 058
     Dates: start: 20200329
  5. PALONOSETRON HYDROCHLORIDE. [Concomitant]
     Active Substance: PALONOSETRON HYDROCHLORIDE
     Indication: ANTIEMETIC SUPPORTIVE CARE
     Route: 041
     Dates: start: 20200324, end: 20200324
  6. LEVOTHYROXINE SODIUM. [Concomitant]
     Active Substance: LEVOTHYROXINE SODIUM
     Indication: HYPOTHYROIDISM
     Dosage: 25 MICROGRAM
     Route: 048
     Dates: start: 20200318, end: 20200327
  7. CIMETIDINE [Concomitant]
     Active Substance: CIMETIDINE
     Indication: ALLERGY PROPHYLAXIS
     Route: 041
     Dates: start: 20200324, end: 20200324
  8. EPINEPHRINE. [Concomitant]
     Active Substance: EPINEPHRINE
     Indication: PROPHYLAXIS
     Route: 030
     Dates: start: 20200329
  9. MORPHINE [Concomitant]
     Active Substance: MORPHINE
     Indication: BACK PAIN
     Dosage: 60 MILLIGRAM
     Route: 048
     Dates: start: 20200319, end: 20200327
  10. METOPROLOL TARTRATE. [Concomitant]
     Active Substance: METOPROLOL TARTRATE
     Route: 065
  11. HUMAN ALBUMIN [Concomitant]
     Active Substance: ALBUMIN HUMAN
     Indication: HYPOALBUMINAEMIA
     Route: 041
     Dates: start: 20200326, end: 20200326
  12. FUROSEMIDE. [Concomitant]
     Active Substance: FUROSEMIDE
     Indication: DIURETIC THERAPY
     Route: 041
     Dates: start: 20200326, end: 20200326
  13. FUROSEMIDE. [Concomitant]
     Active Substance: FUROSEMIDE
     Route: 040
     Dates: start: 20200327
  14. INDOMETHACIN. [Concomitant]
     Active Substance: INDOMETHACIN
     Indication: ANALGESIC THERAPY
     Route: 054
     Dates: start: 20200327, end: 20200327
  15. ABRAXANE [Suspect]
     Active Substance: PACLITAXEL
     Indication: CERVIX CARCINOMA
     Dosage: 416 MILLIGRAM
     Route: 041
     Dates: start: 20200324, end: 20200324
  16. PALONOSETRON HYDROCHLORIDE. [Concomitant]
     Active Substance: PALONOSETRON HYDROCHLORIDE
     Route: 048
     Dates: start: 20200325, end: 20200327
  17. PALONOSETRON HYDROCHLORIDE. [Concomitant]
     Active Substance: PALONOSETRON HYDROCHLORIDE
     Route: 065
  18. SPIRONOLACTONE. [Concomitant]
     Active Substance: SPIRONOLACTONE
     Indication: DIURETIC THERAPY
     Dosage: 40 MILLIGRAM
     Route: 048
     Dates: start: 20200326, end: 20200327
  19. SERPLULIMAB. [Suspect]
     Active Substance: SERPLULIMAB
     Indication: CERVIX CARCINOMA
     Dosage: 292.5 MILLIGRAM
     Route: 041
     Dates: start: 20200324, end: 20200324
  20. FUROSEMIDE. [Concomitant]
     Active Substance: FUROSEMIDE
     Indication: POLYURIA
     Route: 041
     Dates: start: 20200329
  21. NOREPINEPHRINE. [Concomitant]
     Active Substance: NOREPINEPHRINE
     Indication: PROPHYLAXIS
     Route: 065
     Dates: start: 20200329
  22. PROMETHAZINE [Concomitant]
     Active Substance: PROMETHAZINE HYDROCHLORIDE
     Indication: PROPHYLAXIS
     Route: 030
     Dates: start: 20200329

REACTIONS (4)
  - White blood cell count decreased [Not Recovered/Not Resolved]
  - Neutrophil count decreased [Not Recovered/Not Resolved]
  - Cardiac failure [Not Recovered/Not Resolved]
  - Multiple organ dysfunction syndrome [Fatal]

NARRATIVE: CASE EVENT DATE: 20200326
